FAERS Safety Report 10300906 (Version 1)
Quarter: 2014Q3

REPORT INFORMATION
  Report Type: Spontaneous
  Country: US (occurrence: US)
  Receive Date: 20140714
  Receipt Date: 20140714
  Transmission Date: 20150326
  Serious: No
  Sender: FDA-Public Use
  Company Number: US-PFIZER INC-2014190543

PATIENT
  Age: 90 Year
  Sex: Female

DRUGS (2)
  1. TESSALON [Suspect]
     Active Substance: BENZONATATE
     Dosage: UNK
  2. DETROL [Suspect]
     Active Substance: TOLTERODINE TARTRATE
     Dosage: UNK

REACTIONS (1)
  - Drug hypersensitivity [Unknown]
